FAERS Safety Report 26051095 (Version 1)
Quarter: 2025Q4

REPORT INFORMATION
  Report Type: Spontaneous
  Country: US (occurrence: US)
  Receive Date: 20251117
  Receipt Date: 20251117
  Transmission Date: 20260117
  Serious: No
  Sender: STRIDES
  Company Number: US-STRIDES ARCOLAB LIMITED-2025SP012660

PATIENT
  Age: 63 Year
  Sex: Male

DRUGS (24)
  1. MORPHINE SULFATE [Suspect]
     Active Substance: MORPHINE SULFATE
     Indication: Neuralgia
     Dosage: 30 MILLIGRAM, EVERY 12 HRS, EXTENDED-RELEASE
     Route: 065
  2. MORPHINE SULFATE [Suspect]
     Active Substance: MORPHINE SULFATE
     Indication: Cancer pain
  3. MORPHINE SULFATE [Suspect]
     Active Substance: MORPHINE SULFATE
     Indication: Plasmacytoma
  4. TOPIRAMATE [Suspect]
     Active Substance: TOPIRAMATE
     Indication: Neuralgia
     Dosage: 50 MILLIGRAM 0.5/DAY
     Route: 065
  5. TOPIRAMATE [Suspect]
     Active Substance: TOPIRAMATE
     Indication: Cancer pain
  6. TOPIRAMATE [Suspect]
     Active Substance: TOPIRAMATE
     Indication: Plasmacytoma
  7. DULOXETINE [Concomitant]
     Active Substance: DULOXETINE
     Indication: Neuralgia
     Dosage: UNK
     Route: 065
  8. DULOXETINE [Concomitant]
     Active Substance: DULOXETINE
     Indication: Cancer pain
  9. DULOXETINE [Concomitant]
     Active Substance: DULOXETINE
     Indication: Plasmacytoma
  10. CANNABIS SATIVA SUBSP. INDICA TOP [Concomitant]
     Active Substance: CANNABIS SATIVA SUBSP. INDICA TOP
     Indication: Neuralgia
     Dosage: UNK
     Route: 065
  11. CANNABIS SATIVA SUBSP. INDICA TOP [Concomitant]
     Active Substance: CANNABIS SATIVA SUBSP. INDICA TOP
     Indication: Cancer pain
  12. CANNABIS SATIVA SUBSP. INDICA TOP [Concomitant]
     Active Substance: CANNABIS SATIVA SUBSP. INDICA TOP
     Indication: Plasmacytoma
  13. BUPRENORPHINE\NALOXONE [Concomitant]
     Active Substance: BUPRENORPHINE\NALOXONE
     Indication: Neuralgia
     Dosage: UNK
     Route: 065
  14. BUPRENORPHINE\NALOXONE [Concomitant]
     Active Substance: BUPRENORPHINE\NALOXONE
     Indication: Cancer pain
  15. BUPRENORPHINE\NALOXONE [Concomitant]
     Active Substance: BUPRENORPHINE\NALOXONE
     Indication: Plasmacytoma
  16. KETAMINE [Concomitant]
     Active Substance: KETAMINE
     Indication: Neuralgia
     Dosage: 10 MILLIGRAM, EVERY 6 HRS
     Route: 048
  17. KETAMINE [Concomitant]
     Active Substance: KETAMINE
     Indication: Cancer pain
     Dosage: 30 MILLIGRAM, EVERY 6 HRS
     Route: 048
  18. KETAMINE [Concomitant]
     Active Substance: KETAMINE
     Indication: Plasmacytoma
     Dosage: 25 MILLIGRAM, EVERY 6 HRS
     Route: 048
  19. KETAMINE [Concomitant]
     Active Substance: KETAMINE
     Dosage: 35 MILLIGRAM
     Route: 048
  20. KETAMINE [Concomitant]
     Active Substance: KETAMINE
     Dosage: THREE TIMES DAILY
     Route: 048
  21. KETAMINE [Concomitant]
     Active Substance: KETAMINE
     Dosage: 50 MILLIGRAM
     Route: 048
  22. NORTRIPTYLINE [Concomitant]
     Active Substance: NORTRIPTYLINE
     Indication: Neuralgia
     Dosage: 50 MILLIGRAM, QD
     Route: 065
  23. NORTRIPTYLINE [Concomitant]
     Active Substance: NORTRIPTYLINE
     Indication: Cancer pain
  24. NORTRIPTYLINE [Concomitant]
     Active Substance: NORTRIPTYLINE
     Indication: Plasmacytoma

REACTIONS (3)
  - Balance disorder [Unknown]
  - Constipation [Unknown]
  - Off label use [Unknown]
